FAERS Safety Report 4642400-0 (Version None)
Quarter: 2005Q2

REPORT INFORMATION
  Report Type: 
  Country: None (occurrence: None)
  Receive Date: 20050421
  Receipt Date: 20050421
  Transmission Date: 20051028
  Serious: Yes (Life-Threatening)
  Sender: FDA-Public Use
  Company Number: None

PATIENT
  Age: 50 Year
  Sex: Male
  Weight: 68.5839 kg

DRUGS (3)
  1. FLUDROCORTISONE   0.1MG [Suspect]
     Indication: INFLAMMATION
     Dosage: 0.2MG   TID   ORAL
     Route: 048
     Dates: start: 20050209, end: 20050404
  2. FLUDROCORTISONE   0.1MG [Suspect]
     Indication: NERVOUS SYSTEM DISORDER
     Dosage: 0.2MG   TID   ORAL
     Route: 048
     Dates: start: 20050209, end: 20050404
  3. GUILLAIN-BARRE SYNDROME [Concomitant]

REACTIONS (1)
  - HYPOKALAEMIA [None]
